FAERS Safety Report 7915942-X (Version None)
Quarter: 2011Q4

REPORT INFORMATION
  Report Type: 
  Country: None (occurrence: None)
  Receive Date: 20111115
  Receipt Date: 20111108
  Transmission Date: 20120403
  Serious: Yes (Death)
  Sender: FDA-Public Use
  Company Number: IT-GILEAD-2011-0046684

PATIENT
  Sex: Female

DRUGS (6)
  1. RAMIPRIL [Concomitant]
     Dosage: UNK
     Route: 048
     Dates: end: 20111101
  2. METOPROLOL SUCCINATE [Concomitant]
     Dosage: UNK
     Route: 048
     Dates: end: 20111101
  3. RANOLAZINE [Suspect]
     Indication: CORONARY ARTERY DISEASE
     Dosage: 750 MG, UNK
     Route: 048
     Dates: start: 20111025
  4. ASPIRIN [Concomitant]
     Dosage: UNK
     Route: 048
     Dates: end: 20111101
  5. PLAVIX [Concomitant]
     Dosage: UNK
     Route: 048
     Dates: end: 20111101
  6. TORSEMIDE [Concomitant]
     Dosage: UNK
     Route: 048
     Dates: end: 20111101

REACTIONS (1)
  - MYOCARDIAL INFARCTION [None]
